FAERS Safety Report 12551081 (Version 2)
Quarter: 2016Q3

REPORT INFORMATION
  Report Type: Report from Study
  Country: CA (occurrence: CA)
  Receive Date: 20160713
  Receipt Date: 20160715
  Transmission Date: 20161109
  Serious: Yes (Other)
  Sender: FDA-Public Use
  Company Number: CA-ROCHE-1786980

PATIENT
  Age: 65 Year
  Sex: Male
  Weight: 90 kg

DRUGS (9)
  1. SOLU-MEDROL [Concomitant]
     Active Substance: METHYLPREDNISOLONE SODIUM SUCCINATE
     Indication: PREMEDICATION
     Route: 042
     Dates: start: 20160622
  2. VIMPAT [Concomitant]
     Active Substance: LACOSAMIDE
  3. DILANTIN [Concomitant]
     Active Substance: PHENYTOIN
  4. RITUXAN [Suspect]
     Active Substance: RITUXIMAB
     Indication: LIMBIC ENCEPHALITIS
     Route: 042
     Dates: start: 20160622
  5. TYLENOL [Concomitant]
     Active Substance: ACETAMINOPHEN
     Indication: PREMEDICATION
     Route: 048
     Dates: start: 20160622
  6. PREVACID [Concomitant]
     Active Substance: LANSOPRAZOLE
  7. RITUXAN [Suspect]
     Active Substance: RITUXIMAB
     Route: 042
     Dates: start: 20160629
  8. CLOBAZAM [Concomitant]
     Active Substance: CLOBAZAM
  9. VALPROIC ACID. [Concomitant]
     Active Substance: VALPROIC ACID

REACTIONS (10)
  - Fall [Unknown]
  - Oxygen saturation decreased [Unknown]
  - Fatigue [Not Recovered/Not Resolved]
  - Oedema peripheral [Not Recovered/Not Resolved]
  - Tremor [Not Recovered/Not Resolved]
  - Dysarthria [Not Recovered/Not Resolved]
  - Face oedema [Not Recovered/Not Resolved]
  - Weight increased [Recovering/Resolving]
  - Localised oedema [Not Recovered/Not Resolved]
  - Clumsiness [Not Recovered/Not Resolved]

NARRATIVE: CASE EVENT DATE: 20160624
